FAERS Safety Report 11787564 (Version 1)
Quarter: 2015Q4

REPORT INFORMATION
  Report Type: Spontaneous
  Country: US (occurrence: US)
  Receive Date: 20151130
  Receipt Date: 20151130
  Transmission Date: 20160305
  Serious: Yes (Hospitalization)
  Sender: FDA-Public Use
  Company Number: US-BAYER-2015-473500

PATIENT
  Age: 65 Year
  Sex: Male

DRUGS (2)
  1. IBRUTINIB [Concomitant]
     Active Substance: IBRUTINIB
  2. BAYER GENUINE ASPIRIN [Suspect]
     Active Substance: ASPIRIN

REACTIONS (2)
  - Pneumonia [Unknown]
  - Contusion [Unknown]

NARRATIVE: CASE EVENT DATE: 2015
